FAERS Safety Report 21029397 (Version 1)
Quarter: 2022Q2

REPORT INFORMATION
  Report Type: Spontaneous
  Country: US (occurrence: US)
  Receive Date: 20220630
  Receipt Date: 20220630
  Transmission Date: 20220721
  Serious: No
  Sender: FDA-Public Use
  Company Number: US-009507513-2206USA006531

PATIENT
  Age: 88 Year
  Sex: Male

DRUGS (3)
  1. BELSOMRA [Suspect]
     Active Substance: SUVOREXANT
     Indication: Insomnia
     Dosage: 5 MILLIGRAM, QPM
     Route: 048
     Dates: start: 20220531, end: 202206
  2. BELSOMRA [Suspect]
     Active Substance: SUVOREXANT
     Dosage: 10 MILLIGRAM, QPM
     Route: 048
     Dates: start: 202206, end: 202206
  3. BELSOMRA [Suspect]
     Active Substance: SUVOREXANT
     Dosage: 15 MILLIGRAM / 1 TABLET NIGHTLY
     Route: 048
     Dates: start: 202206

REACTIONS (3)
  - Drug ineffective [Not Recovered/Not Resolved]
  - Muscle twitching [Not Recovered/Not Resolved]
  - Electric shock sensation [Not Recovered/Not Resolved]

NARRATIVE: CASE EVENT DATE: 20220601
